FAERS Safety Report 8309940-4 (Version None)
Quarter: 2012Q2

REPORT INFORMATION
  Report Type: 
  Country: None (occurrence: None)
  Receive Date: 20120425
  Receipt Date: 20120419
  Transmission Date: 20120825
  Serious: Yes (Other)
  Sender: FDA-Public Use
  Company Number: BR-PFIZER INC-2012098598

PATIENT
  Age: 66 Year
  Sex: Female

DRUGS (3)
  1. LYRICA [Suspect]
     Indication: PAIN
     Dosage: UNK
     Route: 048
  2. DEPAKOTE [Concomitant]
     Indication: MIGRAINE
     Dosage: 1 TABLET (UNKNOWN DOSE) DAILY
  3. CYMBALTA [Concomitant]
     Indication: DEPRESSION
     Dosage: 1 TABLET (UNKNOWN DOSE) DAILY
     Dates: start: 20000419

REACTIONS (3)
  - PAIN [None]
  - SOMNOLENCE [None]
  - INTERVERTEBRAL DISC PROTRUSION [None]
